FAERS Safety Report 11252786 (Version 3)
Quarter: 2018Q1

REPORT INFORMATION
  Report Type: Spontaneous
  Country: US (occurrence: US)
  Receive Date: 20150708
  Receipt Date: 20180329
  Transmission Date: 20180508
  Serious: Yes (Hospitalization)
  Sender: FDA-Public Use
  Company Number: US-ENDO PHARMACEUTICALS INC.-2015-001737

PATIENT
  Age: 54 Year
  Sex: Male
  Weight: 87.16 kg

DRUGS (1)
  1. FORTESTA [Suspect]
     Active Substance: TESTOSTERONE
     Indication: ANDROGEN REPLACEMENT THERAPY
     Dosage: UNK UNKNOWN, DAILY
     Route: 061
     Dates: start: 20120730, end: 201307

REACTIONS (4)
  - Transient ischaemic attack [Unknown]
  - Chronic kidney disease [Unknown]
  - Cerebrovascular accident [Unknown]
  - Hypertension [Unknown]

NARRATIVE: CASE EVENT DATE: 20130708
